APPROVED DRUG PRODUCT: CLARAVIS
Active Ingredient: ISOTRETINOIN
Strength: 30MG
Dosage Form/Route: CAPSULE;ORAL
Application: A076135 | Product #003 | TE Code: AB1
Applicant: TEVA PHARMACEUTICALS USA
Approved: May 11, 2006 | RLD: No | RS: No | Type: RX